FAERS Safety Report 4682238-1 (Version None)
Quarter: 2005Q2

REPORT INFORMATION
  Report Type: 
  Country: None (occurrence: None)
  Receive Date: 20050606
  Receipt Date: 20030922
  Transmission Date: 20051028
  Serious: Yes (Hospitalization, Other)
  Sender: FDA-Public Use
  Company Number: PHEH2003US08694

PATIENT
  Age: 77 Year
  Sex: Female

DRUGS (9)
  1. TAXOTERE [Concomitant]
  2. PROCRIT [Concomitant]
  3. AREDIA [Suspect]
     Indication: METASTASES TO BONE
     Dosage: 90 MG, Q4WKS
     Route: 042
     Dates: start: 19910928, end: 20030405
  4. VERAPAMIL [Concomitant]
  5. WARFARIN [Concomitant]
  6. FUROSEMIDE [Concomitant]
  7. K-DUR 10 [Concomitant]
  8. DIGOXIN [Concomitant]
  9. CARDIZEM [Concomitant]

REACTIONS (32)
  - BONE DEVELOPMENT ABNORMAL [None]
  - BONE DISORDER [None]
  - BONE INFECTION [None]
  - ERYTHEMA [None]
  - FRACTURE REDUCTION [None]
  - IMPAIRED HEALING [None]
  - INFECTION [None]
  - JAW DISORDER [None]
  - JAW FRACTURE [None]
  - LOCAL SWELLING [None]
  - LYMPHADENOPATHY [None]
  - MALIGNANT NEOPLASM PROGRESSION [None]
  - METASTASIS [None]
  - OEDEMA [None]
  - ORAL DISCHARGE [None]
  - ORAL INTAKE REDUCED [None]
  - ORAL PAIN [None]
  - OSTEOLYSIS [None]
  - OSTEOMYELITIS [None]
  - OSTEONECROSIS [None]
  - PAIN [None]
  - PARAESTHESIA ORAL [None]
  - PURULENCE [None]
  - PYREXIA [None]
  - RADIATION INJURY [None]
  - SEQUESTRECTOMY [None]
  - SWELLING [None]
  - SWELLING FACE [None]
  - TOOTH DISORDER [None]
  - TOOTH EXTRACTION [None]
  - TRISMUS [None]
  - WHITE BLOOD CELL COUNT INCREASED [None]
